FAERS Safety Report 9619352 (Version 1)
Quarter: 2013Q4

REPORT INFORMATION
  Report Type: Spontaneous
  Country: US (occurrence: US)
  Receive Date: 20131014
  Receipt Date: 20131014
  Transmission Date: 20140711
  Serious: Yes (Hospitalization)
  Sender: FDA-Public Use
  Company Number: US-BAYER-2013-123405

PATIENT
  Age: 45 Year
  Sex: Female

DRUGS (11)
  1. YAZ [Suspect]
  2. YASMIN [Suspect]
  3. NICOTINE [Concomitant]
     Dosage: 14 MG, UNK
  4. TRAZODONE [Concomitant]
     Indication: SLEEP DISORDER
     Dosage: 50 MG, HS
  5. LEXAPRO [Concomitant]
     Dosage: 10 MG, UNK
     Dates: start: 20030731, end: 20050103
  6. PREVACID [Concomitant]
     Dosage: 30 MG, EVERY DAY
  7. LORTAB [Concomitant]
     Indication: PAIN
     Dosage: 500 ONE TO TWO TABLETS EVERY FOUR TO SIX HOURS AS NEEDED
  8. ALLEGRA-D [Concomitant]
     Dosage: UNK
     Dates: start: 20030731, end: 20040629
  9. ZITHROMAX [Concomitant]
     Dosage: 250 MG, UNK
     Dates: start: 20031124
  10. ALBUTEROL [Concomitant]
     Dosage: 90 ?G, UNK
     Route: 045
     Dates: start: 20031124
  11. DIAZEPAM [Concomitant]
     Dosage: 2 MG, UNK
     Dates: start: 20031124, end: 20040118

REACTIONS (1)
  - Pulmonary embolism [None]
